FAERS Safety Report 5855353-4 (Version None)
Quarter: 2008Q3

REPORT INFORMATION
  Report Type: 
  Country: None (occurrence: None)
  Receive Date: 20080822
  Receipt Date: 20080806
  Transmission Date: 20090109
  Serious: Yes (Other)
  Sender: FDA-Public Use
  Company Number: 031976

PATIENT
  Sex: Female

DRUGS (1)
  1. CLARAVIS [Suspect]
     Dosage: 60 MG, QD, ORAL
     Route: 048
     Dates: start: 20061027, end: 20061201

REACTIONS (2)
  - DRUG EXPOSURE BEFORE PREGNANCY [None]
  - PREGNANCY [None]
